FAERS Safety Report 8102003-2 (Version None)
Quarter: 2012Q1

REPORT INFORMATION
  Report Type: 
  Country: None (occurrence: None)
  Receive Date: 20120131
  Receipt Date: 20120126
  Transmission Date: 20120608
  Serious: Yes (Hospitalization, Other)
  Sender: FDA-Public Use
  Company Number: KR-ABBOTT-12P-090-0892978-00

PATIENT
  Age: 57 Year
  Sex: Male
  Weight: 43 kg

DRUGS (11)
  1. DAEWOONG LOPERAMIDE [Concomitant]
     Indication: DIARRHOEA
     Route: 048
     Dates: start: 20100415, end: 20100504
  2. ZENTEL [Concomitant]
     Indication: HELMINTHIC INFECTION
     Route: 048
     Dates: start: 20100601, end: 20100605
  3. PYRIDOXINE HCL [Concomitant]
     Indication: LEUKOPENIA
     Route: 048
     Dates: start: 20100228, end: 20100821
  4. ALUMINUM HYDROXIDE AND MAGNESIUM TRISILICATE [Concomitant]
     Indication: DIARRHOEA
     Route: 048
     Dates: start: 20100415, end: 20100420
  5. STILLNOX [Concomitant]
     Indication: INSOMNIA
     Route: 048
     Dates: start: 20100601, end: 20120101
  6. ABC [Concomitant]
     Indication: ANTIRETROVIRAL THERAPY
     Dates: start: 20100421
  7. KALETRA [Suspect]
     Indication: HIV INFECTION
     Dates: start: 20100401
  8. SEPTRA [Suspect]
     Dates: start: 20100421, end: 20100506
  9. HYALEIN MINI [Concomitant]
     Indication: PROPHYLAXIS
     Dosage: ED
     Dates: start: 20100506
  10. SEPTRA [Suspect]
     Indication: PROPHYLAXIS
     Route: 048
     Dates: start: 20100518
  11. LAMIVUDINE (EPIVIR HBV) [Concomitant]
     Indication: ANTIRETROVIRAL THERAPY
     Dates: start: 20100421

REACTIONS (5)
  - RASH GENERALISED [None]
  - PERIPHERAL NERVE PALSY [None]
  - HYPERLIPIDAEMIA [None]
  - ASTHENIA [None]
  - HYPOPHAGIA [None]
